FAERS Safety Report 9165528 (Version 4)
Quarter: 2013Q2

REPORT INFORMATION
  Report Type: Spontaneous
  Country: DE (occurrence: DE)
  Receive Date: 20130315
  Receipt Date: 20130429
  Transmission Date: 20140414
  Serious: Yes (Other)
  Sender: FDA-Public Use
  Company Number: DE-BAXTER-2013BAX008819

PATIENT
  Age: 17 Year
  Sex: Male
  Weight: 82 kg

DRUGS (7)
  1. FEIBA NF 500 E [Suspect]
     Indication: PRODUCT USED FOR UNKNOWN INDICATION
     Dosage: 78000
     Route: 065
  2. FEIBA NF 500 E [Suspect]
     Dosage: 112000
     Route: 065
  3. FEIBA NF 500 E [Suspect]
     Dosage: 96000
     Route: 065
  4. FEIBA NF 500 E [Suspect]
     Dosage: 58000
     Route: 065
  5. FEIBA NF 500 E [Suspect]
     Dosage: 28000
     Route: 065
  6. FEIBA NF 500 E [Suspect]
     Route: 065
  7. HAEMATE P [Suspect]
     Indication: PRODUCT USED FOR UNKNOWN INDICATION
     Route: 065

REACTIONS (3)
  - Epistaxis [Recovered/Resolved]
  - Factor VIII inhibition [Recovered/Resolved]
  - Pelvic pain [Recovered/Resolved]
